FAERS Safety Report 12780124 (Version 1)
Quarter: 2016Q3

REPORT INFORMATION
  Report Type: Spontaneous
  Country: US (occurrence: US)
  Receive Date: 20160923
  Receipt Date: 20160923
  Transmission Date: 20161109
  Serious: Yes (Other)
  Sender: FDA-Public Use
  Company Number: None

PATIENT
  Age: 38 Year
  Sex: Male
  Weight: 92.25 kg

DRUGS (1)
  1. ZYPREXA [Suspect]
     Active Substance: OLANZAPINE
     Indication: SCHIZOPHRENIA
     Dosage: 10 MG OTHER INTRAMUSCULAR??
     Route: 030
     Dates: start: 20160608, end: 20160608

REACTIONS (2)
  - Fluid intake reduced [None]
  - Hypotension [None]

NARRATIVE: CASE EVENT DATE: 20160608
